FAERS Safety Report 5006413-1 (Version None)
Quarter: 2006Q2

REPORT INFORMATION
  Report Type: 
  Country: None (occurrence: None)
  Receive Date: 20060519
  Receipt Date: 20060511
  Transmission Date: 20061013
  Serious: Yes (Death, Hospitalization)
  Sender: FDA-Public Use
  Company Number: SE-JNJFOC-20060502725

PATIENT
  Age: 77 Year
  Sex: Male

DRUGS (13)
  1. REMICADE [Suspect]
     Indication: RHEUMATOID ARTHRITIS
     Route: 042
  2. ARTONIL [Concomitant]
     Route: 065
  3. TRAMADOL HCL [Concomitant]
     Route: 065
  4. PROSCAR [Concomitant]
     Route: 065
  5. CALCICHEW [Concomitant]
     Route: 065
  6. ACETAMINOPHEN [Concomitant]
     Route: 065
  7. SALURES-K [Concomitant]
     Route: 065
  8. SALURES-K [Concomitant]
     Route: 065
  9. PREDNISOLONE [Concomitant]
     Route: 065
  10. NITROMEX [Concomitant]
     Route: 065
  11. TROMBYL [Concomitant]
     Route: 065
  12. LAKTULOS [Concomitant]
     Route: 048
  13. ACETYLCYSTEINE [Concomitant]
     Route: 065

REACTIONS (2)
  - DEATH [None]
  - LYMPHOMA [None]
